FAERS Safety Report 7980837-2 (Version None)
Quarter: 2011Q4

REPORT INFORMATION
  Report Type: 
  Country: None (occurrence: None)
  Receive Date: 20111214
  Receipt Date: 20111209
  Transmission Date: 20120403
  Serious: Yes (Other)
  Sender: FDA-Public Use
  Company Number: US-ROCHE-1020815

PATIENT
  Sex: Female

DRUGS (4)
  1. FOSAMAX [Suspect]
     Indication: OSTEOPOROSIS
     Dates: start: 20000101, end: 20060101
  2. BONIVA [Suspect]
     Indication: OSTEOPENIA
  3. BONIVA [Suspect]
     Indication: OSTEOPOROSIS
     Dates: start: 20060101, end: 20100101
  4. FOSAMAX [Suspect]
     Indication: OSTEOPENIA

REACTIONS (3)
  - EMOTIONAL DISTRESS [None]
  - FEMUR FRACTURE [None]
  - ANXIETY [None]
